FAERS Safety Report 24548003 (Version 2)
Quarter: 2024Q4

REPORT INFORMATION
  Report Type: Report from Study
  Country: GB (occurrence: GB)
  Receive Date: 20241025
  Receipt Date: 20241225
  Transmission Date: 20250115
  Serious: Yes (Other)
  Sender: NOVARTIS
  Company Number: GB-002147023-NVSC2024GB127612

PATIENT
  Age: 54 Year
  Sex: Male
  Weight: 93.6 kg

DRUGS (2)
  1. COSENTYX [Suspect]
     Active Substance: SECUKINUMAB
     Indication: Psoriatic arthropathy
     Dosage: UNK
     Route: 058
     Dates: start: 202010
  2. COSENTYX [Suspect]
     Active Substance: SECUKINUMAB
     Dosage: 150 MG, QMO
     Route: 058

REACTIONS (9)
  - Papilloedema [Unknown]
  - Localised infection [Recovered/Resolved]
  - Infection [Recovered/Resolved]
  - Musculoskeletal stiffness [Recovering/Resolving]
  - Arthritis [Not Recovered/Not Resolved]
  - Dry eye [Unknown]
  - Optic disc disorder [Unknown]
  - Eye pain [Unknown]
  - Product availability issue [Unknown]

NARRATIVE: CASE EVENT DATE: 20240523
